FAERS Safety Report 13847385 (Version 1)
Quarter: 2017Q3

REPORT INFORMATION
  Report Type: Spontaneous
  Country: CZ (occurrence: CZ)
  Receive Date: 20170808
  Receipt Date: 20170808
  Transmission Date: 20171127
  Serious: Yes (Life-Threatening, Hospitalization, Other)
  Sender: FDA-Public Use
  Company Number: CZ-MYLANLABS-2017M1047867

PATIENT

DRUGS (4)
  1. MIRTAZAPINE. [Suspect]
     Active Substance: MIRTAZAPINE
     Indication: PRODUCT USED FOR UNKNOWN INDICATION
     Dosage: 300 MG IN TOTAL
     Dates: start: 20140928, end: 20140928
  2. STOPEX [Suspect]
     Active Substance: DEXTROMETHORPHAN HYDROBROMIDE
     Indication: PRODUCT USED FOR UNKNOWN INDICATION
     Dosage: 690 MG IN TOTAL
     Dates: start: 20140928, end: 20140928
  3. AMBROXOL [Suspect]
     Active Substance: AMBROXOL
     Indication: PRODUCT USED FOR UNKNOWN INDICATION
     Dosage: 600 MG IN TOTAL
     Dates: start: 20140928, end: 20140928
  4. PARALEN [Suspect]
     Active Substance: ACETAMINOPHEN
     Indication: PRODUCT USED FOR UNKNOWN INDICATION
     Dosage: 5 G IN TOTAL
     Dates: start: 20160928, end: 20160928

REACTIONS (5)
  - Fatigue [Unknown]
  - Vomiting [Unknown]
  - Overdose [Unknown]
  - Suicide attempt [Unknown]
  - Intentional product misuse [Unknown]

NARRATIVE: CASE EVENT DATE: 20140928
